FAERS Safety Report 6971997-0 (Version None)
Quarter: 2010Q3

REPORT INFORMATION
  Report Type: 
  Country: None (occurrence: None)
  Receive Date: 20100908
  Receipt Date: 20100908
  Transmission Date: 20110219
  Serious: No
  Sender: FDA-Public Use
  Company Number: None

PATIENT
  Sex: Female
  Weight: 97.5234 kg

DRUGS (1)
  1. ARTHROTEC [Suspect]
     Indication: ARTHRALGIA
     Dosage: 75MG TWICE DAILY BY MOUTH
     Route: 048
     Dates: start: 20100601

REACTIONS (2)
  - FEELING ABNORMAL [None]
  - GASTRIC DISORDER [None]
